FAERS Safety Report 7569006-8 (Version None)
Quarter: 2011Q2

REPORT INFORMATION
  Report Type: 
  Country: None (occurrence: None)
  Receive Date: 20110623
  Receipt Date: 20110616
  Transmission Date: 20111010
  Serious: Yes (Hospitalization)
  Sender: FDA-Public Use
  Company Number: FR-PFIZER INC-2011131911

PATIENT
  Age: 39 Year
  Sex: Male

DRUGS (8)
  1. ESCITALOPRAM OXALATE [Suspect]
     Indication: DEPRESSION
     Dosage: UNK
     Route: 048
     Dates: end: 20110402
  2. ALCOHOL [Concomitant]
  3. CO-TRIATEC [Concomitant]
  4. ACETAMINOPHEN AND TRAMADOL HCL [Concomitant]
     Indication: PAIN
     Dosage: 6 DF UNK
  5. IBUPROFEN [Concomitant]
  6. XANAX [Suspect]
     Indication: DEPRESSION
     Dosage: UNK
     Dates: end: 20110402
  7. RAMIPRIL [Concomitant]
     Indication: HYPERTENSION
  8. DESLORATADINE [Concomitant]

REACTIONS (4)
  - MERYCISM [None]
  - SUICIDAL BEHAVIOUR [None]
  - TOXICITY TO VARIOUS AGENTS [None]
  - ALCOHOL POISONING [None]
